FAERS Safety Report 20429167 (Version 1)
Quarter: 2022Q1

REPORT INFORMATION
  Report Type: Spontaneous
  Country: US (occurrence: US)
  Receive Date: 20220204
  Receipt Date: 20220204
  Transmission Date: 20220424
  Serious: No
  Sender: FDA-Public Use
  Company Number: US-ALLERGAN-2201855US

PATIENT
  Age: 54 Year

DRUGS (2)
  1. VUITY [Suspect]
     Active Substance: PILOCARPINE HYDROCHLORIDE
     Indication: Visual impairment
     Dosage: UNK
     Route: 047
  2. VUITY [Suspect]
     Active Substance: PILOCARPINE HYDROCHLORIDE
     Dosage: UNK
     Route: 047

REACTIONS (5)
  - Paraesthesia [Unknown]
  - Dizziness [Recovering/Resolving]
  - Nausea [Unknown]
  - Headache [Unknown]
  - Vision blurred [Not Recovered/Not Resolved]
